FAERS Safety Report 7939097-0 (Version None)
Quarter: 2011Q4

REPORT INFORMATION
  Report Type: 
  Country: None (occurrence: None)
  Receive Date: 20111124
  Receipt Date: 20111116
  Transmission Date: 20120403
  Serious: Yes (Death)
  Sender: FDA-Public Use
  Company Number: JP-ROCHE-1007008

PATIENT
  Sex: Female

DRUGS (5)
  1. MUCOSTA [Concomitant]
     Route: 048
  2. FAMOSTAGINE [Concomitant]
     Route: 048
  3. AZULFIDINE [Concomitant]
     Indication: RHEUMATOID ARTHRITIS
     Route: 048
  4. PEON [Concomitant]
     Indication: RHEUMATOID ARTHRITIS
     Route: 048
  5. ACTEMRA [Suspect]
     Indication: RHEUMATOID ARTHRITIS
     Route: 041
     Dates: start: 20081126, end: 20090513

REACTIONS (1)
  - NON-HODGKIN'S LYMPHOMA [None]
